FAERS Safety Report 4489648-6 (Version None)
Quarter: 2004Q4

REPORT INFORMATION
  Report Type: 
  Country: None (occurrence: None)
  Receive Date: 20041101
  Receipt Date: 20041022
  Transmission Date: 20050328
  Serious: Yes (Other)
  Sender: FDA-Public Use
  Company Number: PHBS2004CH14112

PATIENT
  Age: 36 Year
  Sex: Female

DRUGS (7)
  1. TEGRETOL [Suspect]
     Indication: BIPOLAR DISORDER
     Dosage: 800 MG/DAY
  2. STOCRIN [Suspect]
     Indication: HIV INFECTION
     Dosage: 1 TABLET/DAY
     Route: 048
  3. COMBIVIR [Suspect]
     Indication: HIV INFECTION
     Dosage: ZIDO 150/ LAMIV 300 MG/DAY
  4. LITHIUM CARBONATE [Suspect]
     Indication: BIPOLAR DISORDER
     Dosage: 4.5 TABLET/DAY
     Route: 048
  5. PRAZINE [Suspect]
     Indication: BIPOLAR DISORDER
     Dosage: 100 MG/DAY
  6. ZOLOFT [Suspect]
     Indication: BIPOLAR DISORDER
     Dosage: 250 MG/DAY
  7. HUMALOG [Concomitant]
     Indication: DIABETES MELLITUS

REACTIONS (3)
  - CUSHING'S SYNDROME [None]
  - CUSHINGOID [None]
  - DEXAMETHASONE SUPPRESSION TEST POSITIVE [None]
